FAERS Safety Report 7820644-4 (Version None)
Quarter: 2011Q4

REPORT INFORMATION
  Report Type: 
  Country: None (occurrence: None)
  Receive Date: 20111018
  Receipt Date: 20111013
  Transmission Date: 20120403
  Serious: Yes (Hospitalization, Other)
  Sender: FDA-Public Use
  Company Number: BR-ABBOTT-10P-020-0626051-00

PATIENT
  Sex: Female
  Weight: 70 kg

DRUGS (10)
  1. FLUTICASONE PROPIONATE/SALMETEROL [Concomitant]
     Indication: LUNG DISORDER
     Dosage: 100 MG + 1000MCG
     Route: 048
  2. MELOXICAM 10MG+DEFLAZACORT 3MG+CODEINE 10MG [Concomitant]
     Indication: MUSCULOSKELETAL PAIN
     Dosage: 10MG + 3MG + 10 MG
     Route: 048
  3. PANTOPRAZOLE [Concomitant]
     Indication: GASTRIC DISORDER
     Route: 048
  4. VINPOCETINE [Concomitant]
     Indication: CEREBROVASCULAR ACCIDENT
     Route: 048
  5. LEFLUNOMIDE [Concomitant]
     Indication: MUSCULOSKELETAL PAIN
     Route: 048
  6. HUMIRA [Suspect]
     Indication: RHEUMATOID ARTHRITIS
     Route: 058
  7. STRONTIUM RANELATE [Concomitant]
     Indication: BONE DISORDER
     Route: 048
  8. ACETYLCYSTEINE [Concomitant]
     Indication: FATIGUE
     Route: 048
  9. PRIMIDONE [Concomitant]
     Indication: TREMOR
     Route: 048
  10. FORMOTEROL FUMARATE [Concomitant]
     Indication: LUNG DISORDER
     Dosage: 12MG + 14 MG
     Route: 048

REACTIONS (7)
  - PYREXIA [None]
  - RADICULITIS [None]
  - PAIN IN EXTREMITY [None]
  - NERVE ROOT LESION [None]
  - HERPES ZOSTER [None]
  - PNEUMONIA [None]
  - WEIGHT DECREASED [None]
